FAERS Safety Report 5499342-0 (Version None)
Quarter: 2007Q4

REPORT INFORMATION
  Report Type: 
  Country: None (occurrence: None)
  Receive Date: 20071026
  Receipt Date: 20071016
  Transmission Date: 20080405
  Serious: Yes (Death, Hospitalization, Other)
  Sender: FDA-Public Use
  Company Number: US-ELI_LILLY_AND_COMPANY-US200703006270

PATIENT
  Sex: Male

DRUGS (5)
  1. ALIMTA [Suspect]
     Indication: NON-SMALL CELL LUNG CANCER
     Dosage: 1000 MG, UNK
     Route: 042
     Dates: start: 20070212, end: 20070305
  2. AMIODARONE [Concomitant]
     Indication: CARDIOVASCULAR DISORDER
     Dates: start: 20070301
  3. VITAMIN B-12 [Concomitant]
     Dosage: 1000 UG, UNK
     Route: 058
     Dates: start: 20070206
  4. FOLIC ACID [Concomitant]
     Dosage: 1 MG, DAILY (1/D)
     Route: 048
     Dates: start: 20070129
  5. CORTICOSTEROIDS [Concomitant]
     Dosage: 4 MG, 2/D
     Route: 048
     Dates: start: 20070712

REACTIONS (4)
  - ACUTE RESPIRATORY DISTRESS SYNDROME [None]
  - CARDIO-RESPIRATORY ARREST [None]
  - CARDIOVASCULAR DISORDER [None]
  - PULMONARY TOXICITY [None]
